FAERS Safety Report 7523522-3 (Version None)
Quarter: 2011Q2

REPORT INFORMATION
  Report Type: 
  Country: None (occurrence: None)
  Receive Date: 20110603
  Receipt Date: 20110602
  Transmission Date: 20111010
  Serious: Yes (Life-Threatening, Hospitalization, Other)
  Sender: FDA-Public Use
  Company Number: US-B.I. PHARMACEUTICALS,INC./RIDGEFIELD-2011-BP-14505BP

PATIENT

DRUGS (1)
  1. PRADAXA [Suspect]

REACTIONS (2)
  - HAEMORRHAGE [None]
  - BLADDER CANCER [None]
